FAERS Safety Report 9466373 (Version 1)
Quarter: 2013Q3

REPORT INFORMATION
  Report Type: Spontaneous
  Country: US (occurrence: None)
  Receive Date: 20130816
  Receipt Date: 20130816
  Transmission Date: 20140515
  Serious: No
  Sender: FDA-Public Use
  Company Number: None

PATIENT
  Age: 57 Year
  Sex: Female
  Weight: 81.65 kg

DRUGS (4)
  1. PRAMIPEXOLE [Suspect]
     Route: 048
     Dates: start: 20130522, end: 20130810
  2. PLAQUENIL [Concomitant]
  3. PRILOSEC [Concomitant]
  4. SYNTHROID [Concomitant]

REACTIONS (1)
  - Joint swelling [None]
